FAERS Safety Report 11178070 (Version 1)
Quarter: 2015Q2

REPORT INFORMATION
  Report Type: Spontaneous
  Country: US (occurrence: None)
  Receive Date: 20150515
  Receipt Date: 20150515
  Transmission Date: 20150821
  Serious: Yes (Other)
  Sender: FDA-Public Use
  Company Number: 2015005393

PATIENT
  Sex: Female

DRUGS (2)
  1. PREDNISONE (PREDNISONE ACETATE) [Concomitant]
  2. CIMZIA [Suspect]
     Active Substance: CERTOLIZUMAB PEGOL
     Indication: CROHN^S DISEASE
     Dosage: EV 4 WEEKS
     Route: 058
     Dates: start: 201405

REACTIONS (2)
  - Abscess [None]
  - Drug effect decreased [None]
